FAERS Safety Report 16181574 (Version 2)
Quarter: 2019Q2

REPORT INFORMATION
  Report Type: Spontaneous
  Country: JP (occurrence: JP)
  Receive Date: 20190410
  Receipt Date: 20190410
  Transmission Date: 20190711
  Serious: Yes (Other)
  Sender: FDA-Public Use
  Company Number: PHJP2019JP004081

PATIENT
  Age: 44 Year
  Sex: Female

DRUGS (28)
  1. NEUPRO [Suspect]
     Active Substance: ROTIGOTINE
     Dosage: 22.5 MG, QD
     Route: 062
     Dates: start: 20181222, end: 20181228
  2. NEUPRO [Suspect]
     Active Substance: ROTIGOTINE
     Dosage: 13.5 MG, QD
     Route: 062
     Dates: start: 20190109, end: 20190120
  3. COMTAN [Suspect]
     Active Substance: ENTACAPONE
     Dosage: 200 MG, QD
     Route: 048
     Dates: start: 20190105, end: 20190112
  4. COMTAN [Suspect]
     Active Substance: ENTACAPONE
     Dosage: 100 MG, QD
     Route: 048
     Dates: start: 20190113, end: 20190116
  5. GRAMALIL [Suspect]
     Active Substance: TIAPRIDE HYDROCHLORIDE
     Dosage: 75 MG, QD
     Route: 048
     Dates: start: 20190210, end: 20190214
  6. GRAMALIL [Suspect]
     Active Substance: TIAPRIDE HYDROCHLORIDE
     Dosage: 25 MG, QD
     Route: 048
     Dates: start: 20190220, end: 20190224
  7. COMTAN [Suspect]
     Active Substance: ENTACAPONE
     Indication: PRODUCT USED FOR UNKNOWN INDICATION
     Dosage: 400 MG, QD
     Route: 048
     Dates: end: 20181218
  8. COMTAN [Suspect]
     Active Substance: ENTACAPONE
     Dosage: 300 MG, QD
     Route: 048
     Dates: start: 20181219, end: 20190104
  9. NEUPRO [Suspect]
     Active Substance: ROTIGOTINE
     Indication: PARKINSON^S DISEASE
     Dosage: 27 MG, QD
     Route: 062
     Dates: end: 20181221
  10. NEUPRO [Suspect]
     Active Substance: ROTIGOTINE
     Dosage: 18 MG, QD
     Route: 062
     Dates: start: 20181229, end: 20190108
  11. NEODOPASTON [Suspect]
     Active Substance: CARBIDOPA\LEVODOPA
     Dosage: 500 MG, QD
     Route: 048
     Dates: start: 20181226
  12. QUETIAPINE. [Suspect]
     Active Substance: QUETIAPINE
     Dosage: 137.5 MG, QD
     Route: 048
     Dates: start: 20190105, end: 20190112
  13. GRAMALIL [Suspect]
     Active Substance: TIAPRIDE HYDROCHLORIDE
     Dosage: 250 MG, QD
     Route: 048
     Dates: start: 20181219, end: 20181221
  14. GRAMALIL [Suspect]
     Active Substance: TIAPRIDE HYDROCHLORIDE
     Dosage: 100 MG, QD
     Route: 048
     Dates: start: 20190206, end: 20190209
  15. NEODOPASTON [Suspect]
     Active Substance: CARBIDOPA\LEVODOPA
     Dosage: 600 MG, QD
     Route: 048
     Dates: start: 20181219, end: 20181225
  16. MAGNESIUM OXIDE. [Concomitant]
     Active Substance: MAGNESIUM OXIDE
     Indication: PRODUCT USED FOR UNKNOWN INDICATION
     Dosage: UNK
     Route: 048
     Dates: start: 20181222
  17. QUETIAPINE. [Suspect]
     Active Substance: QUETIAPINE
     Indication: PRODUCT USED FOR UNKNOWN INDICATION
     Dosage: 150 MG, QD
     Route: 048
     Dates: end: 20190104
  18. GRAMALIL [Suspect]
     Active Substance: TIAPRIDE HYDROCHLORIDE
     Dosage: 200 MG, QD
     Route: 048
     Dates: start: 20181222, end: 20181228
  19. GRAMALIL [Suspect]
     Active Substance: TIAPRIDE HYDROCHLORIDE
     Dosage: 50 MG, QD
     Route: 048
     Dates: start: 20190215, end: 20190219
  20. QUETIAPINE. [Suspect]
     Active Substance: QUETIAPINE
     Dosage: 125 MG, QD
     Route: 048
     Dates: start: 20190113, end: 20190120
  21. QUETIAPINE. [Suspect]
     Active Substance: QUETIAPINE
     Dosage: 112.5 MG, QD
     Route: 048
     Dates: start: 20190121, end: 20190201
  22. GRAMALIL [Suspect]
     Active Substance: TIAPRIDE HYDROCHLORIDE
     Dosage: 125 MG, QD
     Route: 048
     Dates: start: 20190129, end: 20190205
  23. NEUPRO [Suspect]
     Active Substance: ROTIGOTINE
     Dosage: 9 MG, QD
     Route: 062
     Dates: start: 20190121, end: 20190205
  24. NEUPRO [Suspect]
     Active Substance: ROTIGOTINE
     Dosage: 4.5 MG, QD
     Route: 062
     Dates: start: 20190206, end: 20190302
  25. QUETIAPINE. [Suspect]
     Active Substance: QUETIAPINE
     Dosage: 100 MG, QD
     Route: 048
     Dates: start: 20190202
  26. GRAMALIL [Suspect]
     Active Substance: TIAPRIDE HYDROCHLORIDE
     Indication: PRODUCT USED FOR UNKNOWN INDICATION
     Dosage: 300 MG, QD
     Route: 048
     Dates: end: 20181218
  27. GRAMALIL [Suspect]
     Active Substance: TIAPRIDE HYDROCHLORIDE
     Dosage: 150 MG, QD
     Route: 048
     Dates: start: 20181229, end: 20190128
  28. NEODOPASTON [Suspect]
     Active Substance: CARBIDOPA\LEVODOPA
     Indication: PRODUCT USED FOR UNKNOWN INDICATION
     Dosage: 800 MG, QD
     Route: 048
     Dates: end: 20181218

REACTIONS (1)
  - Sudden onset of sleep [Recovered/Resolved]

NARRATIVE: CASE EVENT DATE: 20190104
